FAERS Safety Report 22084874 (Version 4)
Quarter: 2023Q2

REPORT INFORMATION
  Report Type: Report from Study
  Country: US (occurrence: US)
  Receive Date: 20230310
  Receipt Date: 20230425
  Transmission Date: 20230721
  Serious: Yes (Other)
  Sender: FDA-Public Use
  Company Number: US-PFIZER INC-PV202300038226

PATIENT
  Age: 27 Year
  Sex: Male
  Weight: 79 kg

DRUGS (7)
  1. CYTARABINE [Suspect]
     Active Substance: CYTARABINE
     Indication: Acute myeloid leukaemia
     Dosage: 100 MG/M2, CYCLIC (CYCLIC 1) (TOTAL DOSE: 200MG)
     Route: 042
     Dates: start: 20220514
  2. ZOSYN [Suspect]
     Active Substance: PIPERACILLIN SODIUM\TAZOBACTAM SODIUM
     Dosage: 4.5G IN 0.9% NACL 100ML, INDICATION EXTENDED 4 HOUR INFUSION
     Route: 042
  3. CEFEPIME HYDROCHLORIDE [Suspect]
     Active Substance: CEFEPIME HYDROCHLORIDE
     Dosage: UNK
  4. GILTERITINIB [Suspect]
     Active Substance: GILTERITINIB
     Indication: Acute myeloid leukaemia
     Dosage: ASP2215, 120 MG, CYCLIC (CYCLIC 1)
     Dates: start: 20220523
  5. DAUNORUBICIN [Suspect]
     Active Substance: DAUNORUBICIN
     Indication: Acute myeloid leukaemia
     Dosage: TOTAL DOSE 180 MG
     Route: 042
     Dates: start: 20220514
  6. ZOVIRAX [Suspect]
     Active Substance: ACYCLOVIR
     Dosage: UNK, EVERY 12 HOURS (360 MG IN DEXTROSE 5% INDICATION 100 ML BAG 5MG/KG)
     Route: 042
     Dates: end: 20220607
  7. MICAFUNGIN [Suspect]
     Active Substance: MICAFUNGIN SODIUM
     Dosage: UNK, ONCE DAILY (100 MG IN 0.9% NACL 100 ML, 100 MG)
     Route: 042
     Dates: end: 20220607

REACTIONS (1)
  - Drug-induced liver injury [Recovered/Resolved]

NARRATIVE: CASE EVENT DATE: 20220606
